FAERS Safety Report 6388886-5 (Version None)
Quarter: 2009Q4

REPORT INFORMATION
  Report Type: 
  Country: None (occurrence: None)
  Receive Date: 20091005
  Receipt Date: 20091002
  Transmission Date: 20100525
  Serious: Yes (Death, Hospitalization)
  Sender: FDA-Public Use
  Company Number: US-GENENTECH-290691

PATIENT
  Sex: Male
  Weight: 67.574 kg

DRUGS (10)
  1. BEVACIZUMAB [Suspect]
     Indication: NON-SMALL CELL LUNG CANCER
     Dosage: 700 G, UNK
     Route: 042
     Dates: start: 20090618
  2. PEMETREXED [Suspect]
     Indication: NON-SMALL CELL LUNG CANCER
     Dosage: 744 MG, UNK
     Route: 042
     Dates: start: 20090618
  3. GEMCITABINE [Suspect]
     Indication: NON-SMALL CELL LUNG CANCER
     Dosage: 2232 MG, UNK
     Route: 042
     Dates: start: 20090618
  4. FOLIC ACID [Concomitant]
     Indication: NON-SMALL CELL LUNG CANCER
     Dosage: 1 MG, UNK
     Route: 048
     Dates: start: 20090101
  5. VITAMIN B-12 [Concomitant]
     Indication: NON-SMALL CELL LUNG CANCER
     Dosage: 1000 A?G, UNK
     Route: 030
     Dates: start: 20090101
  6. CILOSTAZOL [Concomitant]
     Indication: DRUG USE FOR UNKNOWN INDICATION
     Dosage: 50 MG, QD
     Route: 048
     Dates: start: 20050101
  7. FINASTERIDE [Concomitant]
     Indication: DRUG USE FOR UNKNOWN INDICATION
     Dosage: 5 G, QD
     Route: 048
     Dates: start: 20040101
  8. FLUOXETINE [Concomitant]
     Indication: DRUG USE FOR UNKNOWN INDICATION
     Dosage: UNK
     Dates: start: 19910101
  9. LEVOTHYROXINE SODIUM [Concomitant]
     Indication: DRUG USE FOR UNKNOWN INDICATION
     Dosage: 50 A?G, QD
     Route: 048
     Dates: start: 20090501
  10. DEMECLOCYCLINE HCL [Concomitant]
     Indication: DRUG USE FOR UNKNOWN INDICATION
     Dosage: 150 MG, BID
     Route: 048
     Dates: start: 20090101

REACTIONS (3)
  - ASTHENIA [None]
  - DEATH [None]
  - DYSPNOEA [None]
